FAERS Safety Report 8258958-9 (Version None)
Quarter: 2012Q2

REPORT INFORMATION
  Report Type: 
  Country: None (occurrence: None)
  Receive Date: 20120404
  Receipt Date: 20120323
  Transmission Date: 20120825
  Serious: Yes (Hospitalization)
  Sender: FDA-Public Use
  Company Number: US-ROCHE-1052030

PATIENT
  Sex: Female

DRUGS (8)
  1. COLACE [Concomitant]
  2. COMPAZINE [Concomitant]
  3. ZOFRAN [Concomitant]
  4. IRINOTECAN HCL [Suspect]
     Indication: OVARIAN CANCER
     Route: 042
  5. AMLODIPINE [Concomitant]
  6. SPIRONOLACTONE [Concomitant]
  7. AVASTIN [Suspect]
     Indication: OVARIAN CANCER
     Route: 042
  8. PERCOCET [Concomitant]

REACTIONS (1)
  - HYDRONEPHROSIS [None]
